FAERS Safety Report 10503285 (Version 1)
Quarter: 2014Q4

REPORT INFORMATION
  Report Type: Not Available
  Country: US (occurrence: US)
  Receive Date: 20141008
  Receipt Date: 20141008
  Transmission Date: 20150528
  Serious: No
  Sender: FDA-Public Use
  Company Number: US-LUPIN PHARMACEUTICALS INC.-E2B_00002471

PATIENT
  Age: 75 Year
  Sex: Female
  Weight: 65.83 kg

DRUGS (6)
  1. ALPHAGAN P [Concomitant]
     Active Substance: BRIMONIDINE TARTRATE
     Indication: CATARACT
     Dosage: 6 GTT (1 DROP IN BOTH EYES)
     Route: 047
  2. LUMIGAN [Concomitant]
     Active Substance: BIMATOPROST
     Indication: CATARACT
     Dosage: 2 GTT (1 DROP IN BOTH EYES, AT BEDTIME)
     Route: 047
  3. PILOCARPINE [Concomitant]
     Active Substance: PILOCARPINE
     Indication: CATARACT
     Dosage: 4 GTT (1 DROP IN RIGHT EYE)
     Route: 047
  4. GATIFLOXACIN. [Suspect]
     Active Substance: GATIFLOXACIN
     Indication: ANTIBIOTIC PROPHYLAXIS
     Route: 047
     Dates: start: 20140907
  5. KETOROLAC [Concomitant]
     Active Substance: KETOROLAC\KETOROLAC TROMETHAMINE
     Indication: CATARACT
     Route: 047
  6. DORZOLAMIDE [Concomitant]
     Active Substance: DORZOLAMIDE
     Indication: CATARACT
     Dosage: 4 GTT (2 DROPS IN BOTH EYES)
     Route: 047

REACTIONS (1)
  - Vomiting [Recovered/Resolved]

NARRATIVE: CASE EVENT DATE: 20140907
